FAERS Safety Report 8995488 (Version 1)
Quarter: 2013Q1

REPORT INFORMATION
  Report Type: Spontaneous
  Country: US (occurrence: US)
  Receive Date: 20130103
  Receipt Date: 20130103
  Transmission Date: 20140127
  Serious: No
  Sender: FDA-Public Use
  Company Number: US-ABBOTT-12P-163-0907507-00

PATIENT
  Age: 72 Year
  Sex: Female
  Weight: 88.53 kg

DRUGS (6)
  1. SYNTHROID [Suspect]
     Indication: HYPOTHYROIDISM
     Dosage: 1/2 OF 100MCG TABLET
     Dates: end: 201202
  2. SYNTHROID [Suspect]
     Dates: start: 201201
  3. SYNTHROID [Suspect]
     Dosage: RETURN TO 50MCG TABLETS
     Dates: start: 201202
  4. TYLENOL [Concomitant]
     Indication: ARTHRITIS
  5. ALDACTAZIDE [Concomitant]
     Indication: HYPERTENSION
  6. XANAX [Concomitant]
     Indication: PRODUCT USED FOR UNKNOWN INDICATION

REACTIONS (2)
  - Blood pressure increased [Recovered/Resolved]
  - Heart rate increased [Recovered/Resolved]
